FAERS Safety Report 23947955 (Version 2)
Quarter: 2024Q3

REPORT INFORMATION
  Report Type: Spontaneous
  Country: US (occurrence: US)
  Receive Date: 20240606
  Receipt Date: 20240903
  Transmission Date: 20241016
  Serious: Yes (Other)
  Sender: BRISTOL MYERS SQUIBB
  Company Number: US-BRISTOL-MYERS SQUIBB COMPANY-2024-089144

PATIENT
  Age: 77 Year
  Sex: Male

DRUGS (1)
  1. ABECMA [Suspect]
     Active Substance: IDECABTAGENE VICLEUCEL
     Indication: Plasma cell myeloma
     Dosage: 429.22X10^6 ANTI-BCMA02CAR+TCELL
     Route: 042
     Dates: start: 20211213

REACTIONS (2)
  - Squamous cell carcinoma of skin [Unknown]
  - Prostate cancer [Unknown]

NARRATIVE: CASE EVENT DATE: 20230207
